FAERS Safety Report 4614453-7 (Version None)
Quarter: 2005Q1

REPORT INFORMATION
  Report Type: 
  Country: None (occurrence: None)
  Receive Date: 20050315
  Receipt Date: 20050228
  Transmission Date: 20050727
  Serious: Yes (Hospitalization, Other)
  Sender: FDA-Public Use
  Company Number: 2004BI000541

PATIENT
  Age: 68 Year
  Sex: Female

DRUGS (16)
  1. AVONEX [Suspect]
     Indication: MULTIPLE SCLEROSIS
     Dosage: 30 UG;QW;IM
     Route: 030
     Dates: start: 19960501
  2. AVONEX [Suspect]
     Indication: MULTIPLE SCLEROSIS
     Dosage: 30 UG;QW;IM
     Route: 030
     Dates: start: 20031101
  3. PREMARIN [Concomitant]
  4. ZELNORM [Concomitant]
  5. CELEXA [Concomitant]
  6. VICODIN [Concomitant]
  7. SYNTHROID [Concomitant]
  8. NEURONTIN [Concomitant]
  9. LIPITOR [Concomitant]
  10. PLAVIL [Concomitant]
  11. COREG [Concomitant]
  12. LASIX [Concomitant]
  13. PRINIVIL [Concomitant]
  14. HALDOL [Concomitant]
  15. FOSAMAX [Concomitant]
  16. TRAZODONE HCL [Concomitant]

REACTIONS (4)
  - CARDIAC FAILURE CHRONIC [None]
  - CHOLELITHIASIS [None]
  - DIFFICULTY IN WALKING [None]
  - TRANSIENT ISCHAEMIC ATTACK [None]
